FAERS Safety Report 9130324 (Version 1)
Quarter: 2013Q1

REPORT INFORMATION
  Report Type: Spontaneous
  Country: US (occurrence: US)
  Receive Date: 20130228
  Receipt Date: 20130228
  Transmission Date: 20140127
  Serious: Yes (Hospitalization, Other)
  Sender: FDA-Public Use
  Company Number: US-009507513-2011SP056195

PATIENT
  Sex: Female
  Weight: 67.13 kg

DRUGS (1)
  1. NUVARING [Suspect]
     Indication: CONTRACEPTION
     Route: 067
     Dates: start: 200604, end: 20091218

REACTIONS (10)
  - Diabetic ketoacidosis [Unknown]
  - Pulmonary embolism [Unknown]
  - Depression [Unknown]
  - Diabetes mellitus inadequate control [Unknown]
  - Major depression [Unknown]
  - Urinary tract infection [Unknown]
  - Anaemia [Unknown]
  - Thyroid neoplasm [Unknown]
  - Thyroid disorder [Unknown]
  - Dyspepsia [Recovering/Resolving]
